FAERS Safety Report 5926303-7 (Version None)
Quarter: 2008Q4

REPORT INFORMATION
  Report Type: 
  Country: None (occurrence: None)
  Receive Date: 20081022
  Receipt Date: 20081014
  Transmission Date: 20090506
  Serious: Yes (Other)
  Sender: FDA-Public Use
  Company Number: CO-JNJFOC-20081003941

PATIENT
  Age: 27 Year
  Sex: Female

DRUGS (1)
  1. ORTHO-NOVUM [Suspect]
     Indication: CONTRACEPTION
     Dosage: 1 TABLET EVERYDAY FOR 21DAYS -RESTART AFTER 8 DAYS
     Route: 065

REACTIONS (2)
  - ASTHMA [None]
  - COUGH [None]
